FAERS Safety Report 9331129 (Version 1)
Quarter: 2013Q2

REPORT INFORMATION
  Report Type: Spontaneous
  Country: DE (occurrence: None)
  Receive Date: 20130531
  Receipt Date: 20130531
  Transmission Date: 20140414
  Serious: Yes (Life-Threatening, Other)
  Sender: FDA-Public Use
  Company Number: AUR-APL-2013-04262

PATIENT
  Age: 51 Year
  Sex: Female
  Weight: 50 kg

DRUGS (2)
  1. QUETIAPINE (QUETIAPINE) (QUETIAPINE) [Suspect]
     Indication: PRODUCT USED FOR UNKNOWN INDICATION
     Route: 048
     Dates: start: 20130213, end: 20130213
  2. TAZOBAC (PIP/TAZO) [Concomitant]

REACTIONS (3)
  - Intentional overdose [None]
  - Leukopenia [None]
  - Pneumonia [None]
